FAERS Safety Report 16971163 (Version 4)
Quarter: 2023Q1

REPORT INFORMATION
  Report Type: Report from Study
  Country: US (occurrence: US)
  Receive Date: 20191029
  Receipt Date: 20230328
  Transmission Date: 20230417
  Serious: Yes (Congenital Anomaly, Other)
  Sender: FDA-Public Use
  Company Number: None

PATIENT
  Age: 0 Year
  Sex: Female
  Weight: 2.721 kg

DRUGS (6)
  1. GILENYA [Suspect]
     Active Substance: FINGOLIMOD HYDROCHLORIDE
     Indication: Foetal exposure during pregnancy
     Dosage: MATERNAL DOSE: 0.5 MG, QD
     Route: 064
  2. GILENYA [Suspect]
     Active Substance: FINGOLIMOD HYDROCHLORIDE
     Dosage: MATERNAL DOSE: 0.5 MG, QD
     Route: 064
  3. PHENTERMINE [Concomitant]
     Active Substance: PHENTERMINE
     Indication: Foetal exposure during pregnancy
     Dosage: MATERNAL DOSE: 30 MG, QD
     Route: 064
  4. VITAMINS [Concomitant]
     Active Substance: VITAMINS
     Indication: Foetal exposure during pregnancy
     Dosage: MATERNAL DOSE: QD
     Route: 064
  5. VITAMINS [Concomitant]
     Active Substance: VITAMINS
     Indication: Foetal exposure during pregnancy
     Dosage: MATERNAL DOSE: QD
     Route: 064
  6. IRON [Concomitant]
     Active Substance: IRON
     Indication: Foetal exposure during pregnancy
     Dosage: MATERNAL DOSE: 500 MG, QD
     Route: 064

REACTIONS (4)
  - Ventricular septal defect [Recovered/Resolved]
  - Small for dates baby [Unknown]
  - Cardiac murmur [Recovered/Resolved]
  - Foetal exposure during pregnancy [Unknown]

NARRATIVE: CASE EVENT DATE: 20190801
